FAERS Safety Report 4277281-0 (Version None)
Quarter: 2004Q1

REPORT INFORMATION
  Report Type: 
  Country: None (occurrence: None)
  Receive Date: 20040120
  Receipt Date: 20040108
  Transmission Date: 20041129
  Serious: Yes (Hospitalization)
  Sender: FDA-Public Use
  Company Number: US-JNJFOC-20040101512

PATIENT
  Age: 75 Year
  Sex: Female

DRUGS (10)
  1. REMICADE [Suspect]
     Indication: RHEUMATOID ARTHRITIS
     Dosage: 3 MG/KG, INTRAVENOUS
     Route: 042
     Dates: start: 20031001
  2. REMICADE [Suspect]
     Indication: RHEUMATOID ARTHRITIS
     Dosage: 3 MG/KG, INTRAVENOUS
     Route: 042
     Dates: start: 20031210
  3. VIOXX [Concomitant]
  4. NORVASC [Concomitant]
  5. PREDNISONE [Concomitant]
  6. MONOPRIL [Concomitant]
  7. ISOSORBIDE (ISOSORBIDE) [Concomitant]
  8. COUMADIN [Concomitant]
  9. PLAVIX [Concomitant]
  10. ASPIRIN [Concomitant]

REACTIONS (3)
  - DYSARTHRIA [None]
  - TRANSIENT ISCHAEMIC ATTACK [None]
  - TREMOR [None]
